FAERS Safety Report 4966038-0 (Version None)
Quarter: 2006Q2

REPORT INFORMATION
  Report Type: 
  Country: None (occurrence: None)
  Receive Date: 20060407
  Receipt Date: 20060330
  Transmission Date: 20061013
  Serious: Yes (Other)
  Sender: FDA-Public Use
  Company Number: 13321286

PATIENT
  Age: 40 Year
  Sex: Male

DRUGS (3)
  1. EPIVIR [Suspect]
     Indication: HIV INFECTION
     Dates: start: 20050811
  2. SUSTIVA [Suspect]
     Indication: HIV INFECTION
     Dates: start: 20050811
  3. VIDEX [Suspect]
     Indication: HIV INFECTION
     Dates: start: 20050811

REACTIONS (1)
  - HEPATOTOXICITY [None]
